FAERS Safety Report 4970059-1 (Version None)
Quarter: 2006Q2

REPORT INFORMATION
  Report Type: 
  Country: None (occurrence: None)
  Receive Date: 20060412
  Receipt Date: 20060404
  Transmission Date: 20061013
  Serious: Yes (Hospitalization)
  Sender: FDA-Public Use
  Company Number: 2006UW06008

PATIENT
  Age: 45 Year
  Sex: Female

DRUGS (6)
  1. SEROQUEL [Suspect]
     Indication: DEPRESSION
     Route: 048
  2. SEROQUEL [Suspect]
     Indication: PSYCHOTIC DISORDER
     Route: 048
  3. SEROQUEL [Suspect]
     Route: 048
     Dates: start: 20050101
  4. SEROQUEL [Suspect]
     Route: 048
     Dates: start: 20050101
  5. SEROQUEL [Suspect]
     Dosage: 200 MG QAM AND 200 MG HS
     Route: 048
     Dates: start: 20000101
  6. SEROQUEL [Suspect]
     Dosage: 200 MG QAM AND 200 MG HS
     Route: 048
     Dates: start: 20000101

REACTIONS (3)
  - BLOOD PRESSURE DECREASED [None]
  - MUSCLE TWITCHING [None]
  - TRANSIENT ISCHAEMIC ATTACK [None]
